FAERS Safety Report 14959758 (Version 1)
Quarter: 2018Q2

REPORT INFORMATION
  Report Type: Spontaneous
  Country: GB (occurrence: GB)
  Receive Date: 20180531
  Receipt Date: 20180531
  Transmission Date: 20180711
  Serious: Yes (Life-Threatening, Hospitalization)
  Sender: FDA-Public Use
  Company Number: GB-PFIZER INC-2018218633

PATIENT
  Age: 29 Year
  Sex: Female
  Weight: 60.32 kg

DRUGS (4)
  1. GABAPENTIN. [Concomitant]
     Active Substance: GABAPENTIN
  2. CHAMPIX [Suspect]
     Active Substance: VARENICLINE TARTRATE
     Indication: SMOKING CESSATION THERAPY
     Dosage: 1 G, UNK
     Route: 048
     Dates: start: 20170901, end: 20171021
  3. TRAMADOL HYDROCHLORIDE. [Concomitant]
     Active Substance: TRAMADOL HYDROCHLORIDE
     Dosage: UNK
  4. DIHYDROCODEINE TARTRATE [Concomitant]
     Active Substance: DIHYDROCODEINE BITARTRATE

REACTIONS (9)
  - Nausea [Unknown]
  - Respiratory arrest [Recovered/Resolved]
  - Influenza like illness [Unknown]
  - Circulatory collapse [Recovered/Resolved]
  - Cerebral haemorrhage [Recovered/Resolved with Sequelae]
  - Malaise [Unknown]
  - Headache [Unknown]
  - Dizziness [Unknown]
  - Chills [Unknown]

NARRATIVE: CASE EVENT DATE: 20171019
